FAERS Safety Report 19037167 (Version 1)
Quarter: 2021Q1

REPORT INFORMATION
  Report Type: Spontaneous
  Country: US (occurrence: US)
  Receive Date: 20210319
  Receipt Date: 20210319
  Transmission Date: 20210420
  Serious: No
  Sender: FDA-Public Use
  Company Number: None

PATIENT
  Age: 65 Year
  Sex: Male

DRUGS (1)
  1. ZOLPIDEM (ZOLPIDEM TARTRATE 10MG TAB) [Suspect]
     Active Substance: ZOLPIDEM TARTRATE
     Indication: INSOMNIA
     Route: 048
     Dates: start: 20210117, end: 20210119

REACTIONS (1)
  - Delirium [None]

NARRATIVE: CASE EVENT DATE: 20210119
